FAERS Safety Report 23925253 (Version 1)
Quarter: 2024Q2

REPORT INFORMATION
  Report Type: Spontaneous
  Country: US (occurrence: US)
  Receive Date: 20240531
  Receipt Date: 20240531
  Transmission Date: 20240716
  Serious: No
  Sender: FDA-Public Use
  Company Number: US-Nobelpharma America, LLC-NPA-2024-00910

PATIENT
  Age: 42 Year
  Sex: Female

DRUGS (2)
  1. HYFTOR [Suspect]
     Active Substance: SIROLIMUS
     Indication: Tuberous sclerosis complex
     Dosage: BID
     Route: 003
     Dates: start: 20240312
  2. HYFTOR [Suspect]
     Active Substance: SIROLIMUS
     Dosage: PRESCRIBER CHANGED FREQUENCY TO QD
     Route: 003
     Dates: start: 20240514

REACTIONS (2)
  - Application site pain [Not Recovered/Not Resolved]
  - Off label use [None]

NARRATIVE: CASE EVENT DATE: 20240514
